FAERS Safety Report 4385430-9 (Version None)
Quarter: 2004Q2

REPORT INFORMATION
  Report Type: 
  Country: None (occurrence: None)
  Receive Date: 20040625
  Receipt Date: 20040625
  Transmission Date: 20050107
  Serious: Yes (Hospitalization)
  Sender: FDA-Public Use
  Company Number: None

PATIENT

DRUGS (3)
  1. LITHIUM 300MG CAP [Suspect]
     Dosage: 300 MG BID
  2. FUROSEMIDE [Suspect]
     Dosage: 40 MG BID
  3. LOSARTAN 25MG Q1 [Suspect]

REACTIONS (2)
  - DRUG TOXICITY [None]
  - TREMOR [None]
